FAERS Safety Report 25457622 (Version 1)
Quarter: 2025Q2

REPORT INFORMATION
  Report Type: Report from Study
  Country: US (occurrence: US)
  Receive Date: 20250619
  Receipt Date: 20250619
  Transmission Date: 20250717
  Serious: Yes (Other)
  Sender: JOHNSON AND JOHNSON
  Company Number: US-JNJFOC-20250615898

PATIENT
  Age: 57 Year
  Sex: Female

DRUGS (2)
  1. TREMFYA [Suspect]
     Active Substance: GUSELKUMAB
     Indication: Colitis ulcerative
     Route: 042
     Dates: start: 20250216
  2. PREDNISONE [Suspect]
     Active Substance: PREDNISONE
     Dates: start: 20241124, end: 202505

REACTIONS (4)
  - Myocardial infarction [Unknown]
  - Anaphylactic shock [Recovered/Resolved]
  - Adrenal insufficiency [Unknown]
  - Urinary tract infection [Recovered/Resolved]

NARRATIVE: CASE EVENT DATE: 20250301
